FAERS Safety Report 14854606 (Version 1)
Quarter: 2018Q2

REPORT INFORMATION
  Report Type: Spontaneous
  Country: US (occurrence: US)
  Receive Date: 20180420
  Receipt Date: 20180420
  Transmission Date: 20180711
  Serious: Yes (Life-Threatening, Disabling)
  Sender: FDA-Public Use
  Company Number: None

PATIENT
  Age: 31 Year
  Sex: Female
  Weight: 81.19 kg

DRUGS (9)
  1. PARAGARD T 380A [Suspect]
     Active Substance: COPPER
  2. PREDNISONE. [Concomitant]
     Active Substance: PREDNISONE
  3. PARAGARD T 380A [Concomitant]
     Active Substance: COPPER
  4. ALBUDERAL [Concomitant]
  5. ADDERALL [Concomitant]
     Active Substance: AMPHETAMINE ASPARTATE\AMPHETAMINE SULFATE\DEXTROAMPHETAMINE SACCHARATE\DEXTROAMPHETAMINE SULFATE
  6. VITAMIN D [Concomitant]
     Active Substance: CHOLECALCIFEROL
  7. OMEPRAZOLE. [Concomitant]
     Active Substance: OMEPRAZOLE
  8. EFFEXOR [Concomitant]
     Active Substance: VENLAFAXINE HYDROCHLORIDE
  9. NYSTATIN. [Concomitant]
     Active Substance: NYSTATIN

REACTIONS (18)
  - Cognitive disorder [None]
  - Hypertension [None]
  - Depression [None]
  - Carpal tunnel syndrome [None]
  - Pulmonary mass [None]
  - Anxiety [None]
  - Hepatic steatosis [None]
  - Weight increased [None]
  - Pain [None]
  - Memory impairment [None]
  - Viral infection [None]
  - Palpitations [None]
  - Gastrooesophageal reflux disease [None]
  - Hypertriglyceridaemia [None]
  - Pancreatic mass [None]
  - Lung infection [None]
  - Panic attack [None]
  - Cholelithiasis [None]

NARRATIVE: CASE EVENT DATE: 20180405
